FAERS Safety Report 16713432 (Version 4)
Quarter: 2019Q4

REPORT INFORMATION
  Report Type: Report from Study
  Country: None (occurrence: US)
  Receive Date: 20190818
  Receipt Date: 20191107
  Transmission Date: 20200122
  Serious: Yes (Other)
  Sender: FDA-Public Use
  Company Number: US-ABBVIE-19K-163-2886986-00

PATIENT
  Sex: Female

DRUGS (1)
  1. HUMIRA [Suspect]
     Active Substance: ADALIMUMAB
     Indication: RHEUMATOID ARTHRITIS
     Route: 058
     Dates: start: 20190726, end: 20191101

REACTIONS (6)
  - Intervertebral disc protrusion [Unknown]
  - Inflammatory marker increased [Not Recovered/Not Resolved]
  - Arthritis [Recovering/Resolving]
  - Joint swelling [Not Recovered/Not Resolved]
  - Thoracic vertebral fracture [Unknown]
  - Loss of personal independence in daily activities [Unknown]

NARRATIVE: CASE EVENT DATE: 2019
